FAERS Safety Report 5146004-5 (Version None)
Quarter: 2006Q4

REPORT INFORMATION
  Report Type: 
  Country: None (occurrence: None)
  Receive Date: 20061108
  Receipt Date: 20061031
  Transmission Date: 20070319
  Serious: Yes (Other)
  Sender: FDA-Public Use
  Company Number: JP-JNJFOC-20061005720

PATIENT
  Age: 67 Year
  Sex: Female

DRUGS (5)
  1. ITRIZOLE [Suspect]
     Route: 048
  2. ITRIZOLE [Suspect]
     Indication: NAIL TINEA
     Route: 048
  3. FLEROXACIN [Concomitant]
     Route: 048
  4. HUSCOBRON [Concomitant]
     Route: 048
  5. CONTOL [Concomitant]
     Route: 048

REACTIONS (1)
  - HEPATIC FUNCTION ABNORMAL [None]
